FAERS Safety Report 4321095-X (Version None)
Quarter: 2004Q1

REPORT INFORMATION
  Report Type: 
  Country: None (occurrence: None)
  Receive Date: 20040322
  Receipt Date: 20040322
  Transmission Date: 20041129
  Serious: Yes (Disabling)
  Sender: FDA-Public Use
  Company Number: None

PATIENT
  Age: 30 Year
  Sex: Male
  Weight: 72.5755 kg

DRUGS (2)
  1. CIPRO [Suspect]
     Indication: PROSTATITIS
     Dosage: 500MG 1 TIME DAI ORAL
     Route: 048
     Dates: start: 20031115, end: 20031125
  2. CIPRO [Suspect]
     Indication: PROSTATITIS
     Dosage: 1000MG 1 TIME DAI ORAL
     Route: 048
     Dates: start: 20031228, end: 20040111

REACTIONS (11)
  - ARTHRALGIA [None]
  - CONVULSION [None]
  - DEPRESSION [None]
  - DYSTONIA [None]
  - HEADACHE [None]
  - HYPERSENSITIVITY [None]
  - MYALGIA [None]
  - NERVOUS SYSTEM DISORDER [None]
  - POISONING [None]
  - TENDON DISORDER [None]
  - TREMOR [None]
